FAERS Safety Report 8535576-6 (Version None)
Quarter: 2012Q2

REPORT INFORMATION
  Report Type: 
  Country: None (occurrence: None)
  Receive Date: 20120412
  Receipt Date: 20100310
  Transmission Date: 20120825
  Serious: Yes (Other)
  Sender: FDA-Public Use
  Company Number: PHEH2010US03107

PATIENT
  Sex: Male

DRUGS (1)
  1. CLOZARIL [Suspect]
     Indication: SCHIZOPHRENIA, PARANOID TYPE

REACTIONS (1)
  - EOSINOPHIL COUNT INCREASED [None]
